FAERS Safety Report 10054697 (Version 2)
Quarter: 2014Q2

REPORT INFORMATION
  Report Type: Spontaneous
  Country: US (occurrence: US)
  Receive Date: 20140402
  Receipt Date: 20140402
  Transmission Date: 20141212
  Serious: No
  Sender: FDA-Public Use
  Company Number: US-AMGEN-USASP2014018224

PATIENT
  Age: 54 Year
  Sex: Female
  Weight: 81.63 kg

DRUGS (6)
  1. ENBREL [Suspect]
     Indication: RHEUMATOID ARTHRITIS
     Dosage: 50 MG, QWK
     Route: 065
     Dates: start: 20120226
  2. IBUPROFEN [Suspect]
     Indication: PRODUCT USED FOR UNKNOWN INDICATION
     Dosage: UNK
     Route: 048
     Dates: start: 2010
  3. PLAQUENIL                          /00072602/ [Concomitant]
     Indication: RHEUMATOID ARTHRITIS
     Dosage: 400 MG, QD
     Route: 048
     Dates: start: 2010
  4. PREVACID [Concomitant]
     Dosage: UNK
     Route: 048
     Dates: start: 2010
  5. PROZAC [Concomitant]
     Dosage: 40 MG, UNK
     Route: 048
     Dates: start: 2010
  6. ATIVAN [Concomitant]
     Dosage: 0.5 MG, TID
     Route: 048
     Dates: start: 2010

REACTIONS (3)
  - Salivary gland pain [Recovering/Resolving]
  - Gastrooesophageal reflux disease [Recovering/Resolving]
  - Pharyngitis streptococcal [Not Recovered/Not Resolved]
